FAERS Safety Report 4896647-9 (Version None)
Quarter: 2006Q1

REPORT INFORMATION
  Report Type: 
  Country: None (occurrence: None)
  Receive Date: 20060131
  Receipt Date: 20060125
  Transmission Date: 20060701
  Serious: Yes (Other)
  Sender: FDA-Public Use
  Company Number: US-GLAXOSMITHKLINE-A0590840A

PATIENT
  Age: 51 Year
  Sex: Male

DRUGS (3)
  1. NICODERM CQ [Suspect]
     Indication: SMOKING CESSATION THERAPY
     Dosage: 21MG UNKNOWN
     Route: 062
     Dates: start: 20051101, end: 20060101
  2. ANTIBIOTIC OINTMENT [Concomitant]
  3. TOPROL [Concomitant]

REACTIONS (10)
  - APPLICATION SITE DERMATITIS [None]
  - APPLICATION SITE IRRITATION [None]
  - APPLICATION SITE PRURITUS [None]
  - APPLICATION SITE URTICARIA [None]
  - DYSPNOEA [None]
  - HYPERSENSITIVITY [None]
  - PRURITUS [None]
  - SWELLING [None]
  - URTICARIA [None]
  - WHEEZING [None]
